FAERS Safety Report 11230207 (Version 1)
Quarter: 2015Q2

REPORT INFORMATION
  Report Type: Spontaneous
  Country: US (occurrence: None)
  Receive Date: 20150630
  Receipt Date: 20150630
  Transmission Date: 20150821
  Serious: No
  Sender: FDA-Public Use
  Company Number: None

PATIENT
  Age: 57 Year
  Sex: Female
  Weight: 83.92 kg

DRUGS (2)
  1. ESTRADIOL. [Suspect]
     Active Substance: ESTRADIOL
     Indication: HORMONE REPLACEMENT THERAPY
     Dosage: APPLIED TO A SURFACE, USUALLY THE SKIN
     Dates: start: 20150603, end: 20150614
  2. ZYRTEC [Concomitant]
     Active Substance: CETIRIZINE HYDROCHLORIDE

REACTIONS (4)
  - Application site vesicles [None]
  - Application site erythema [None]
  - Product adhesion issue [None]
  - Application site pruritus [None]

NARRATIVE: CASE EVENT DATE: 20150613
